FAERS Safety Report 25680556 (Version 2)
Quarter: 2025Q3

REPORT INFORMATION
  Report Type: Report from Study
  Country: US (occurrence: US)
  Receive Date: 20250814
  Receipt Date: 20250901
  Transmission Date: 20251020
  Serious: Yes (Hospitalization)
  Sender: ROCHE
  Company Number: US-ROCHE-10000356675

PATIENT
  Age: 73 Year
  Sex: Male

DRUGS (9)
  1. RITUXAN [Suspect]
     Active Substance: RITUXIMAB
     Indication: Ocular pemphigoid
     Route: 029
  2. RITUXAN [Suspect]
     Active Substance: RITUXIMAB
     Route: 029
  3. CELLCEPT [Suspect]
     Active Substance: MYCOPHENOLATE MOFETIL
     Indication: Ocular pemphigoid
     Route: 065
     Dates: start: 202308
  4. DAPSONE [Concomitant]
     Active Substance: DAPSONE
  5. ASPIRIN [Concomitant]
     Active Substance: ASPIRIN
     Route: 048
  6. THERATEARS [Concomitant]
     Active Substance: CARBOXYMETHYLCELLULOSE SODIUM
     Route: 047
  7. LOSARTAN [Concomitant]
     Active Substance: LOSARTAN
     Route: 048
  8. VITAMINS [Concomitant]
     Active Substance: VITAMINS
     Route: 048
  9. PREDNISOLONE ACETATE [Concomitant]
     Active Substance: PREDNISOLONE ACETATE
     Route: 047

REACTIONS (6)
  - Off label use [Unknown]
  - Visual impairment [Unknown]
  - Pain [Unknown]
  - Photophobia [Unknown]
  - Cerebrovascular accident [Unknown]
  - Incorrect route of product administration [Unknown]
